FAERS Safety Report 20205025 (Version 2)
Quarter: 2021Q4

REPORT INFORMATION
  Report Type: Spontaneous
  Country: JP (occurrence: JP)
  Receive Date: 20211220
  Receipt Date: 20211223
  Transmission Date: 20220303
  Serious: Yes (Other)
  Sender: FDA-Public Use
  Company Number: JP-TAKEDA-2021TJP132344

PATIENT
  Age: 6 Decade
  Sex: Female

DRUGS (1)
  1. ALUNBRIG [Suspect]
     Active Substance: BRIGATINIB
     Indication: Lung carcinoma cell type unspecified recurrent
     Dosage: 60 MILLIGRAM
     Route: 048
     Dates: start: 20211007, end: 20211213

REACTIONS (3)
  - Lung carcinoma cell type unspecified recurrent [Not Recovered/Not Resolved]
  - Disease progression [Not Recovered/Not Resolved]
  - Cerebral infarction [Recovering/Resolving]

NARRATIVE: CASE EVENT DATE: 20211201
